FAERS Safety Report 10672185 (Version 1)
Quarter: 2014Q4

REPORT INFORMATION
  Report Type: Spontaneous
  Country: RU (occurrence: RU)
  Receive Date: 20141223
  Receipt Date: 20141223
  Transmission Date: 20150529
  Serious: Yes (Other)
  Sender: FDA-Public Use
  Company Number: RU-JNJFOC-20141212673

PATIENT

DRUGS (2)
  1. HUMAN CLOTTABLE PROTEIN/HUMAN THROMBIN [Suspect]
     Active Substance: FIBRINOGEN HUMAN\THROMBIN HUMAN
     Indication: CEREBROSPINAL FLUID LEAKAGE
     Route: 061
  2. ALL OTHER THERAPEUTIC PRODUCTS [Concomitant]
     Active Substance: UNSPECIFIED INGREDIENT
     Indication: CEREBROSPINAL FLUID LEAKAGE
     Route: 061

REACTIONS (3)
  - Meningitis [Unknown]
  - Off label use [Unknown]
  - Cerebrospinal fluid leakage [Unknown]
